FAERS Safety Report 8868762 (Version 1)
Quarter: 2012Q4

REPORT INFORMATION
  Report Type: 
  Country: US (occurrence: US)
  Receive Date: 20121026
  Receipt Date: 20121026
  Transmission Date: 20130627
  Serious: No
  Sender: FDA-Public Use
  Company Number: US-AMGEN-USASP2012047574

PATIENT
  Sex: Male
  Weight: 106.58 kg

DRUGS (11)
  1. ENBREL [Suspect]
     Indication: PRODUCT USED FOR UNKNOWN INDICATION
     Dosage: 50 mg/ml, qwk
     Route: 058
  2. PANTOPRAZOLE [Concomitant]
     Dosage: 20 mg, UNK
  3. LIPITOR [Concomitant]
     Dosage: 10 mg, UNK
  4. GABAPENTIN [Concomitant]
     Dosage: 100 mg, UNK
  5. LORAZEPAM [Concomitant]
     Dosage: 1 mg, UNK
  6. TAMSULOSIN [Concomitant]
     Dosage: 0.4 mg, UNK
  7. HYDROCOBAMINE [Concomitant]
     Dosage: 2.5-500
  8. FISH OIL [Concomitant]
     Dosage: UNK
  9. VITAMIN C                          /00008001/ [Concomitant]
     Dosage: 500 mg, UNK
  10. MELATONIN                          /07129401/ [Concomitant]
     Dosage: 3 mg, UNK
  11. TRAZODONE [Concomitant]
     Dosage: 100 mg, UNK

REACTIONS (2)
  - Oedema peripheral [Unknown]
  - Pain [Unknown]
